FAERS Safety Report 8362719-X (Version None)
Quarter: 2012Q2

REPORT INFORMATION
  Report Type: 
  Country: None (occurrence: None)
  Receive Date: 20120514
  Receipt Date: 20120426
  Transmission Date: 20120825
  Serious: Yes (Other)
  Sender: FDA-Public Use
  Company Number: US_1192026

PATIENT
  Age: 73 Year
  Sex: Female

DRUGS (6)
  1. LEVOFLOXACIN [Suspect]
     Indication: ANTIBIOTIC PROPHYLAXIS
     Dosage: (AFTER TIME OF ENDOPHTHALMITIS: BID OPHTHALMIC
     Route: 047
  2. POLYMYXIN B SULFATES AND TRIMETHOPRIM SULFATE [Suspect]
     Indication: ANTIBIOTIC PROPHYLAXIS
     Dosage: SEE IMAGE BID OPHTHALMIC
     Route: 047
  3. POLYMYXIN B SULFATES AND TRIMETHOPRIM SULFATE [Suspect]
     Indication: ENDOPHTHALMITIS
     Dosage: SEE IMAGE BID OPHTHALMIC
     Route: 047
  4. PREDNISOLONE ACETATE [Concomitant]
  5. VIGAMOX [Suspect]
     Indication: ANTIBIOTIC PROPHYLAXIS
     Dosage: SEE IMAGE: QID OPHTHALMIC
     Route: 047
  6. VIGAMOX [Suspect]
     Indication: ENDOPHTHALMITIS
     Dosage: SEE IMAGE: QID OPHTHALMIC
     Route: 047

REACTIONS (10)
  - RETINAL DETACHMENT [None]
  - ANTIBIOTIC RESISTANT STAPHYLOCOCCUS TEST POSITIVE [None]
  - ENDOPHTHALMITIS [None]
  - CONJUNCTIVAL HYPERAEMIA [None]
  - CHOROIDAL HAEMORRHAGE [None]
  - COMPLICATIONS OF TRANSPLANT SURGERY [None]
  - VISUAL ACUITY REDUCED [None]
  - VITRITIS [None]
  - VITREOUS DISORDER [None]
  - VITREOUS HAEMORRHAGE [None]
